FAERS Safety Report 6580758-6 (Version None)
Quarter: 2010Q1

REPORT INFORMATION
  Report Type: 
  Country: None (occurrence: None)
  Receive Date: 20100212
  Receipt Date: 20091103
  Transmission Date: 20100710
  Serious: No
  Sender: FDA-Public Use
  Company Number: US-ALLERGAN-0915240US

PATIENT
  Age: 87 Year
  Sex: Female

DRUGS (1)
  1. SANCTURA XR [Suspect]
     Indication: HYPERTONIC BLADDER
     Dosage: 60 MG, QD
     Route: 048

REACTIONS (3)
  - DRUG ADMINISTRATION ERROR [None]
  - DYSURIA [None]
  - HYPERSENSITIVITY [None]
